FAERS Safety Report 8758162 (Version 2)
Quarter: 2012Q4

REPORT INFORMATION
  Report Type: 
  Country: GB (occurrence: GB)
  Receive Date: 20120828
  Receipt Date: 20120828
  Transmission Date: 20130627
  Serious: Yes (Hospitalization, Other)
  Sender: FDA-Public Use
  Company Number: GB-VERTEX PHARMACEUTICAL INC.-000000000000000706

PATIENT
  Age: 49 Year
  Sex: Male
  Weight: 63 kg

DRUGS (18)
  1. TELAPREVIR [Suspect]
     Indication: HEPATITIS C
     Dosage: 750 mg, tid
     Route: 048
     Dates: start: 20120226, end: 20120509
  2. IBUPROFEN [Suspect]
     Indication: PAIN
     Dosage: 400 mg, tid
     Route: 048
     Dates: end: 20120508
  3. IBUPROFEN [Suspect]
     Dosage: UNK
  4. RIBAVIRIN [Concomitant]
     Indication: HEPATITIS C
     Dosage: Dosage Form: Unspecified
     Route: 065
     Dates: start: 20120115, end: 20120509
  5. VIRAFERONPEG [Concomitant]
     Indication: HEPATITIS C
     Dosage: Dosage Form: Unspecified
     Route: 058
     Dates: start: 20120115, end: 20120509
  6. ARANESP [Concomitant]
     Indication: ANAEMIA
     Route: 058
     Dates: start: 20120329, end: 20120509
  7. METHADONE [Concomitant]
     Indication: DEPENDENCE
     Route: 065
  8. METHADONE [Concomitant]
     Dosage: Dosage Form: Unspecified
  9. SERETIDE [Concomitant]
     Indication: CHRONIC OBSTRUCTIVE PULMONARY DISEASE
     Route: 055
  10. SERETIDE [Concomitant]
     Dosage: Dosage Form: Inhalation
     Route: 055
  11. TIOTROPIUM [Concomitant]
     Indication: CHRONIC OBSTRUCTIVE PULMONARY DISEASE
     Route: 065
  12. TIOTROPIUM [Concomitant]
     Dosage: Dosage Form: Unspecified, in the morning
     Route: 055
  13. SALBUTAMOL [Concomitant]
     Indication: CHRONIC OBSTRUCTIVE PULMONARY DISEASE
     Route: 065
  14. SALBUTAMOL [Concomitant]
     Dosage: Dosage Form: Unspecified, PM
     Route: 055
  15. PARACETAMOL [Concomitant]
     Indication: PAIN
     Route: 065
  16. PARACETAMOL [Concomitant]
     Dosage: Dosage Form: Unspecified, in the morning
  17. MIRTAZAPINE [Concomitant]
     Indication: DEPRESSION
     Route: 065
  18. MIRTAZAPINE [Concomitant]
     Dosage: Dosage Form: Unspecified

REACTIONS (15)
  - Renal impairment [Unknown]
  - Anaemia [Recovered/Resolved]
  - Urinary tract infection [Recovered/Resolved]
  - Blood creatinine increased [Recovered/Resolved]
  - Escherichia test positive [Recovered/Resolved]
  - White blood cell count increased [Recovered/Resolved]
  - Pollakiuria [Recovered/Resolved]
  - Blood urea increased [Recovered/Resolved]
  - Neutrophil count increased [Recovered/Resolved]
  - Haemoglobin decreased [Recovered/Resolved]
  - Lower respiratory tract infection [Recovered/Resolved]
  - C-reactive protein increased [Recovered/Resolved]
  - Dysuria [Recovered/Resolved]
  - Flank pain [Recovered/Resolved]
  - Glomerular filtration rate decreased [Recovered/Resolved]
